FAERS Safety Report 7603670-X (Version None)
Quarter: 2011Q3

REPORT INFORMATION
  Report Type: 
  Country: None (occurrence: None)
  Receive Date: 20110711
  Receipt Date: 20110711
  Transmission Date: 20111222
  Serious: Yes (Other)
  Sender: FDA-Public Use
  Company Number: None

PATIENT
  Age: 38 Year
  Sex: Female
  Weight: 79.8331 kg

DRUGS (1)
  1. ELMIRON [Suspect]
     Indication: CYSTITIS INTERSTITIAL
     Dosage: 100MG 3X PER DAY PO
     Route: 048
     Dates: start: 20110101, end: 20110601

REACTIONS (3)
  - ALOPECIA [None]
  - OVARIAN CYST [None]
  - PAIN [None]
